FAERS Safety Report 5688264-8 (Version None)
Quarter: 2008Q1

REPORT INFORMATION
  Report Type: 
  Country: None (occurrence: None)
  Receive Date: 20080328
  Receipt Date: 20080328
  Transmission Date: 20080703
  Serious: Yes (Hospitalization, Other)
  Sender: FDA-Public Use
  Company Number: None

PATIENT
  Sex: Male
  Weight: 74.8435 kg

DRUGS (2)
  1. RISPERDAL CONSTA [Suspect]
     Indication: SCHIZOPHRENIA
     Dosage: 50 MG EVERY 2 WEEKS ONCE  IM
     Route: 030
     Dates: start: 20070824, end: 20070831
  2. RISPERDAL [Suspect]
     Dosage: 4 MG  EVERY NIGHT PO
     Route: 048

REACTIONS (7)
  - CONDITION AGGRAVATED [None]
  - GAIT DISTURBANCE [None]
  - INSOMNIA [None]
  - MUSCULOSKELETAL STIFFNESS [None]
  - SCHIZOPHRENIFORM DISORDER [None]
  - SPEECH DISORDER [None]
  - THINKING ABNORMAL [None]
